FAERS Safety Report 7070564-0 (Version None)
Quarter: 2010Q4

REPORT INFORMATION
  Report Type: 
  Country: None (occurrence: None)
  Receive Date: 20101029
  Receipt Date: 20101018
  Transmission Date: 20110411
  Serious: Yes (Death, Life-Threatening)
  Sender: FDA-Public Use
  Company Number: JP-PFIZER INC-2010072033

PATIENT
  Age: 77 Year
  Sex: Male

DRUGS (3)
  1. ESTRACYT [Suspect]
     Indication: PROSTATE CANCER
     Dosage: 626.8 MG/DAY
     Route: 048
     Dates: start: 20100311, end: 20100528
  2. ZOMETA [Concomitant]
     Indication: PROSTATE CANCER
     Dosage: 4 MG/ 4 WEEKS
     Route: 041
     Dates: start: 20090228, end: 20100506
  3. LEUPLIN [Concomitant]
     Indication: PROSTATE CANCER
     Dosage: 3.75 MG/ 4 WEEKS
     Route: 058
     Dates: start: 20081028, end: 20100603

REACTIONS (2)
  - CARDIAC FAILURE [None]
  - SUBDURAL HAEMATOMA [None]
